FAERS Safety Report 17917524 (Version 1)
Quarter: 2020Q2

REPORT INFORMATION
  Report Type: Spontaneous
  Country: CN (occurrence: CN)
  Receive Date: 20200619
  Receipt Date: 20200619
  Transmission Date: 20200714
  Serious: Yes (Life-Threatening)
  Sender: FDA-Public Use
  Company Number: CN-FRESENIUS KABI-FK202005995

PATIENT
  Age: 72 Year
  Sex: Male
  Weight: 37 kg

DRUGS (2)
  1. LIPOVENOES MCT 20% [Suspect]
     Active Substance: EGG PHOSPHOLIPIDS\GLYCERIN\MEDIUM-CHAIN TRIGLYCERIDES\SOYBEAN OIL
     Indication: CHRONIC OBSTRUCTIVE PULMONARY DISEASE
  2. LIPOVENOES MCT 20% [Suspect]
     Active Substance: EGG PHOSPHOLIPIDS\GLYCERIN\MEDIUM-CHAIN TRIGLYCERIDES\SOYBEAN OIL
     Indication: SILICOSIS
     Dosage: 50G, QD
     Route: 041
     Dates: start: 20200604, end: 20200605

REACTIONS (8)
  - Heart rate irregular [Recovered/Resolved]
  - Oedema peripheral [Recovered/Resolved]
  - Cyanosis [Recovered/Resolved]
  - Dyspnoea [Recovered/Resolved]
  - Extrasystoles [Recovered/Resolved]
  - Chest discomfort [Recovered/Resolved]
  - Cardiac murmur [Recovered/Resolved]
  - Oxygen saturation abnormal [Recovered/Resolved]

NARRATIVE: CASE EVENT DATE: 20200604
